FAERS Safety Report 16361854 (Version 1)
Quarter: 2019Q2

REPORT INFORMATION
  Report Type: Spontaneous
  Country: US (occurrence: US)
  Receive Date: 20190528
  Receipt Date: 20190528
  Transmission Date: 20190711
  Serious: Yes (Other)
  Sender: FDA-Public Use
  Company Number: US-PFIZER INC-2019225180

PATIENT
  Age: 49 Year
  Sex: Male

DRUGS (1)
  1. DILANTIN [Suspect]
     Active Substance: PHENYTOIN
     Dosage: UNK

REACTIONS (5)
  - Cerebellar atrophy [Unknown]
  - Emotional disorder [Unknown]
  - Speech disorder [Unknown]
  - Migraine [Unknown]
  - Insomnia [Unknown]
